FAERS Safety Report 10077205 (Version 1)
Quarter: 2014Q2

REPORT INFORMATION
  Report Type: Spontaneous
  Country: US (occurrence: US)
  Receive Date: 20140414
  Receipt Date: 20140414
  Transmission Date: 20141212
  Serious: No
  Sender: FDA-Public Use
  Company Number: US-BANPHARM-20130886

PATIENT
  Age: 58 Year
  Sex: Female
  Weight: 83.9 kg

DRUGS (3)
  1. NAPROXEN SODIUM 220 MG [Suspect]
     Indication: ARTHRALGIA
     Dosage: 220 MG BID,
     Route: 048
     Dates: start: 201212, end: 201212
  2. ACIFIX [Concomitant]
  3. CRESTOR [Concomitant]
     Dates: start: 201209

REACTIONS (2)
  - Headache [Recovered/Resolved]
  - Diarrhoea [Recovered/Resolved]
